FAERS Safety Report 23665905 (Version 2)
Quarter: 2024Q2

REPORT INFORMATION
  Report Type: Spontaneous
  Country: US (occurrence: US)
  Receive Date: 20240323
  Receipt Date: 20240517
  Transmission Date: 20240716
  Serious: Yes (Hospitalization)
  Sender: FDA-Public Use
  Company Number: US-TEVA-VS-3173592

PATIENT
  Age: 64 Year
  Sex: Male

DRUGS (2)
  1. PREDNISONE [Suspect]
     Active Substance: PREDNISONE
     Indication: Immunosuppressant drug therapy
     Route: 065
  2. TACROLIMUS [Suspect]
     Active Substance: TACROLIMUS
     Indication: Immunosuppressant drug therapy
     Route: 065

REACTIONS (6)
  - Nocardiosis [Recovering/Resolving]
  - Central nervous system infection [Recovering/Resolving]
  - Sepsis [Recovering/Resolving]
  - Encephalopathy [Recovering/Resolving]
  - Pneumonia bacterial [Recovering/Resolving]
  - Bacteraemia [Recovering/Resolving]
